FAERS Safety Report 8445386-6 (Version None)
Quarter: 2012Q2

REPORT INFORMATION
  Report Type: 
  Country: None (occurrence: None)
  Receive Date: 20120618
  Receipt Date: 20110823
  Transmission Date: 20120825
  Serious: No
  Sender: FDA-Public Use
  Company Number: US-TEVA-2011004423

PATIENT
  Sex: Female

DRUGS (2)
  1. AVINZA [Concomitant]
     Dosage: 60 MILLIGRAM;
  2. FENTORA [Suspect]
     Indication: BREAKTHROUGH PAIN
     Dosage: 1600 MICROGRAM;
     Route: 002

REACTIONS (1)
  - DRUG TOLERANCE [None]
